FAERS Safety Report 5992121-7 (Version None)
Quarter: 2008Q4

REPORT INFORMATION
  Report Type: 
  Country: None (occurrence: None)
  Receive Date: 20081211
  Receipt Date: 20081205
  Transmission Date: 20090506
  Serious: Yes (Hospitalization, Disabling)
  Sender: FDA-Public Use
  Company Number: CH-MERCK-0812CHE00005

PATIENT
  Age: 72 Year
  Sex: Male

DRUGS (10)
  1. COZAAR [Suspect]
     Indication: RENAL HYPERTENSION
     Route: 048
  2. COZAAR [Suspect]
     Indication: NEPHROANGIOSCLEROSIS
     Route: 048
  3. CLOPIDOGREL BISULFATE [Suspect]
     Route: 048
  4. INSULIN HUMAN, ISOPHANE [Concomitant]
     Indication: TYPE 1 DIABETES MELLITUS
     Route: 058
  5. METOPROLOL TARTRATE [Concomitant]
     Route: 065
  6. TRAZODONE HYDROCHLORIDE [Concomitant]
     Route: 048
     Dates: end: 20080101
  7. AMLODIPINE BESYLATE [Concomitant]
     Route: 065
     Dates: end: 20080101
  8. ALBUTEROL SULFATE AND IPRATROPIUM BROMIDE [Concomitant]
     Route: 065
  9. ZOPICLONE [Concomitant]
     Route: 065
  10. ESOMEPRAZOLE MAGNESIUM [Concomitant]
     Route: 065
     Dates: start: 20070101

REACTIONS (3)
  - ECZEMA [None]
  - EOSINOPHILIA [None]
  - PRURITUS [None]
